FAERS Safety Report 18763566 (Version 5)
Quarter: 2021Q2

REPORT INFORMATION
  Report Type: Spontaneous
  Country: DE (occurrence: DE)
  Receive Date: 20210120
  Receipt Date: 20210625
  Transmission Date: 20210717
  Serious: Yes (Other)
  Sender: FDA-Public Use
  Company Number: DE-TEVA-2021-DE-1870405

PATIENT
  Age: 44 Year
  Sex: Male

DRUGS (10)
  1. METHOTREXATE. [Suspect]
     Active Substance: METHOTREXATE
     Indication: PSORIATIC ARTHROPATHY
     Dosage: 10 MILLIGRAM, (EVERY 2 WEEKS)
     Route: 058
     Dates: end: 2015
  2. ADALIMUMAB [Suspect]
     Active Substance: ADALIMUMAB
     Indication: PSORIATIC ARTHROPATHY
     Route: 058
  3. ETANERCEPT [Suspect]
     Active Substance: ETANERCEPT
     Indication: PSORIATIC ARTHROPATHY
     Route: 065
  4. SECUKINUMAB. [Suspect]
     Active Substance: SECUKINUMAB
     Indication: PSORIATIC ARTHROPATHY
     Route: 065
     Dates: start: 201801, end: 201803
  5. APREMILAST [Suspect]
     Active Substance: APREMILAST
     Indication: PSORIATIC ARTHROPATHY
     Route: 065
  6. LEFLUNOMID [Suspect]
     Active Substance: LEFLUNOMIDE
     Indication: PSORIATIC ARTHROPATHY
     Route: 065
  7. METHOTREXATE. [Suspect]
     Active Substance: METHOTREXATE
     Route: 058
  8. COSENTYX [Suspect]
     Active Substance: SECUKINUMAB
     Indication: PSORIATIC ARTHROPATHY
     Route: 065
     Dates: start: 201801, end: 201803
  9. TALTZ [Suspect]
     Active Substance: IXEKIZUMAB
     Indication: PSORIATIC ARTHROPATHY
     Dosage: UNK (ONLY 2 ADMINISTRATION)
     Route: 065
     Dates: start: 201803, end: 201812
  10. GOLIMUMAB [Suspect]
     Active Substance: GOLIMUMAB
     Indication: PSORIATIC ARTHROPATHY
     Route: 065

REACTIONS (8)
  - Injection site reaction [Unknown]
  - Therapeutic response decreased [Unknown]
  - Angioedema [Unknown]
  - Drug intolerance [Unknown]
  - Therapeutic product effect incomplete [Unknown]
  - Gastrointestinal disorder [Unknown]
  - Intestinal haemorrhage [Unknown]
  - Hypertension [Unknown]

NARRATIVE: CASE EVENT DATE: 2018
